FAERS Safety Report 7895801 (Version 19)
Quarter: 2017Q3

REPORT INFORMATION
  Report Type: Report from Study
  Country: CA (occurrence: CA)
  Receive Date: 20110412
  Receipt Date: 20170704
  Transmission Date: 20171128
  Serious: Yes (Hospitalization, Other)
  Sender: FDA-Public Use
  Company Number: PHHY2011CA29741

PATIENT
  Age: 48 Year
  Sex: Male

DRUGS (19)
  1. SANDOSTATIN LAR DEPOT [Suspect]
     Active Substance: OCTREOTIDE ACETATE
     Dosage: 40 MG, QMO (3 DOSES 04 SEP 216  AND 01 OCT 2016
     Route: 030
     Dates: start: 20130904, end: 20131030
  2. SANDOSTATIN [Suspect]
     Active Substance: OCTREOTIDE ACETATE
     Dosage: 30 MG, QMO
     Route: 058
     Dates: start: 20100319
  3. DIABINESE [Concomitant]
     Active Substance: CHLORPROPAMIDE
     Indication: PRODUCT USED FOR UNKNOWN INDICATION
     Dosage: 250 MG, QID
     Route: 065
  4. SANDOSTATIN LAR DEPOT [Suspect]
     Active Substance: OCTREOTIDE ACETATE
     Dosage: 30 MG, QMO
     Route: 030
     Dates: start: 20120229
  5. SANDOSTATIN LAR DEPOT [Suspect]
     Active Substance: OCTREOTIDE ACETATE
     Dosage: 40 MG, QMO
     Route: 030
     Dates: start: 20131122
  6. COVERSYL//PERINDOPRIL ARGININE [Concomitant]
     Active Substance: PERINDOPRIL ARGININE
     Indication: PRODUCT USED FOR UNKNOWN INDICATION
     Dosage: 4 MG, UNK
     Route: 065
  7. SANDOSTATIN [Suspect]
     Active Substance: OCTREOTIDE ACETATE
     Dosage: 30 MG, QMO
     Route: 058
     Dates: start: 20120229
  8. AFINITOR [Suspect]
     Active Substance: EVEROLIMUS
     Indication: PANCREATIC NEUROENDOCRINE TUMOUR METASTATIC
     Dosage: 10 MG, QID
     Route: 048
     Dates: start: 20110324, end: 20120216
  9. SUTENT [Concomitant]
     Active Substance: SUNITINIB MALATE
     Indication: DEVICE RELATED INFECTION
     Dosage: 37.5 MG, UNK
     Route: 065
     Dates: start: 20161118
  10. SANDOSTATIN [Suspect]
     Active Substance: OCTREOTIDE ACETATE
     Dosage: 40 MG, QMO
     Route: 058
     Dates: start: 20100601
  11. SANDOSTATIN [Suspect]
     Active Substance: OCTREOTIDE ACETATE
     Dosage: 40 MG, MONTHLY FOR 3 MONTH
     Route: 058
     Dates: start: 20130904, end: 20131030
  12. SANDOSTATIN [Suspect]
     Active Substance: OCTREOTIDE ACETATE
     Dosage: 40 MG, QMO
     Route: 058
     Dates: start: 20141121
  13. SANDOSTATIN LAR DEPOT [Suspect]
     Active Substance: OCTREOTIDE ACETATE
     Dosage: 40 MG, QMO (EVERY 4 WEEKS)
     Route: 030
     Dates: start: 20100601
  14. SANDOSTATIN LAR DEPOT [Suspect]
     Active Substance: OCTREOTIDE ACETATE
     Dosage: 40 MG, QMO (EVERY 4 WEEEK)
     Route: 030
     Dates: start: 20141121
  15. SANDOSTATIN [Suspect]
     Active Substance: OCTREOTIDE ACETATE
     Indication: PANCREATIC NEUROENDOCRINE TUMOUR METASTATIC
     Dosage: UNK
     Route: 058
     Dates: start: 20100301
  16. SANDOSTATIN [Suspect]
     Active Substance: OCTREOTIDE ACETATE
     Dosage: 40 MG, QMO
     Route: 058
     Dates: start: 20131122
  17. SANDOSTATIN [Suspect]
     Active Substance: OCTREOTIDE ACETATE
     Dosage: 40 MG, QMO
     Route: 058
     Dates: start: 20120320
  18. SANDOSTATIN LAR DEPOT [Suspect]
     Active Substance: OCTREOTIDE ACETATE
     Indication: PANCREATIC NEUROENDOCRINE TUMOUR METASTATIC
     Dosage: 30 MG, (QMO), EVERY 28 DAYS/EVERY 4 WEEKS
     Route: 030
     Dates: start: 20100319
  19. SANDOSTATIN LAR DEPOT [Suspect]
     Active Substance: OCTREOTIDE ACETATE
     Dosage: 40 MG, QMO
     Route: 030
     Dates: start: 20120320

REACTIONS (11)
  - Device related infection [Unknown]
  - Blood calcium decreased [Unknown]
  - Bile duct obstruction [Unknown]
  - Haemoglobin decreased [Unknown]
  - Blood pressure systolic increased [Unknown]
  - Oral discomfort [Unknown]
  - Malaise [Unknown]
  - Tongue discomfort [Unknown]
  - Pain [Unknown]
  - Sciatica [Unknown]
  - Injection site pain [Unknown]

NARRATIVE: CASE EVENT DATE: 20110329
